FAERS Safety Report 8511881-4 (Version None)
Quarter: 2012Q3

REPORT INFORMATION
  Report Type: 
  Country: None (occurrence: None)
  Receive Date: 20120716
  Receipt Date: 20120711
  Transmission Date: 20120928
  Serious: Yes (Death, Other)
  Sender: FDA-Public Use
  Company Number: PHHY2012CN054211

PATIENT
  Age: 20 Year
  Sex: Female

DRUGS (16)
  1. ANTI-THYMOCYTE GLOBULIN NOS [Suspect]
     Indication: IMMUNOSUPPRESSION
     Dosage: 30 MG/KG, UNK
  2. MYCOPHENOLATE MOFETIL [Concomitant]
     Indication: PROPHYLAXIS AGAINST GRAFT VERSUS HOST DISEASE
     Dosage: 25 MG/KG, QD
     Route: 048
  3. ACYCLOVIR [Concomitant]
     Indication: INFECTION PROPHYLAXIS
     Route: 042
  4. PLATELET [Concomitant]
  5. RED BLOOD CELLS [Concomitant]
  6. STEROIDS NOS [Concomitant]
  7. CYCLOSPORINE [Suspect]
     Indication: CORD BLOOD TRANSPLANT THERAPY
  8. HUMAN TPO [Concomitant]
     Dosage: 150 U/KG/DAY
     Route: 058
  9. CYCLOSPORINE [Suspect]
  10. FILGRASTIM [Concomitant]
     Dosage: 5 UG/KG, QD
  11. ANTIBIOTICS [Concomitant]
     Indication: FEBRILE NEUTROPENIA
  12. CYCLOSPORINE [Suspect]
     Route: 048
  13. FLUDARABINE PHOSPHATE [Suspect]
     Indication: IMMUNOSUPPRESSION
     Dosage: 120 MG/M2, DAILY
  14. CYCLOPHOSPHAMIDE [Suspect]
     Indication: IMMUNOSUPPRESSION
     Dosage: 1200 MG/M2, DAILY
  15. CYCLOSPORINE [Suspect]
     Indication: PROPHYLAXIS AGAINST GRAFT VERSUS HOST DISEASE
     Dosage: 3 MG/KG, DAY
     Route: 042
  16. ITRACONAZOLE [Concomitant]
     Indication: INFECTION PROPHYLAXIS
     Route: 048

REACTIONS (6)
  - DRUG INEFFECTIVE [None]
  - CEREBRAL HAEMORRHAGE [None]
  - FEBRILE NEUTROPENIA [None]
  - HAEMORRHAGE INTRACRANIAL [None]
  - PNEUMONIA BACTERIAL [None]
  - TRANSPLANT FAILURE [None]
